FAERS Safety Report 16244697 (Version 1)
Quarter: 2019Q2

REPORT INFORMATION
  Report Type: Spontaneous
  Country: CA (occurrence: CA)
  Receive Date: 20190426
  Receipt Date: 20190426
  Transmission Date: 20190711
  Serious: Yes (Other)
  Sender: FDA-Public Use
  Company Number: CA-GEHC-2019CSU002013

PATIENT

DRUGS (2)
  1. OMNISCAN [Suspect]
     Active Substance: GADODIAMIDE
     Indication: SECONDARY PROGRESSIVE MULTIPLE SCLEROSIS
  2. OMNISCAN [Suspect]
     Active Substance: GADODIAMIDE
     Indication: NUCLEAR MAGNETIC RESONANCE IMAGING
     Dosage: 0.1 MMOL/KG
     Route: 042

REACTIONS (1)
  - Nuclear magnetic resonance imaging brain abnormal [Unknown]
